FAERS Safety Report 16366489 (Version 1)
Quarter: 2019Q2

REPORT INFORMATION
  Report Type: Spontaneous
  Country: CA (occurrence: CA)
  Receive Date: 20190529
  Receipt Date: 20190529
  Transmission Date: 20190711
  Serious: Yes (Death, Other)
  Sender: FDA-Public Use
  Company Number: CA-TEVA-2019-CA-1055279

PATIENT
  Age: 71 Year
  Sex: Male
  Weight: 66 kg

DRUGS (15)
  1. LEVOTHYROXINE. [Concomitant]
     Active Substance: LEVOTHYROXINE
  2. NITROGLYCERIN. [Concomitant]
     Active Substance: NITROGLYCERIN
  3. PANTOPRAZOLE MAGNESIUM [Concomitant]
     Active Substance: PANTOPRAZOLE MAGNESIUM
  4. PREGABALIN. [Concomitant]
     Active Substance: PREGABALIN
  5. EMTRICITABINE W/TENOFOVIR [Suspect]
     Active Substance: EMTRICITABINE\TENOFOVIR DISOPROXIL
     Indication: HIV INFECTION
     Route: 048
  6. ANDROGEL [Concomitant]
     Active Substance: TESTOSTERONE
  7. NEVIRAPINE. [Concomitant]
     Active Substance: NEVIRAPINE
  8. ASPIRIN. [Concomitant]
     Active Substance: ASPIRIN
  9. DEXPANTHENOL/ERGOCALCIFEROL/FOLIC ACID/NICOTINAMIDE/RIBOFLAVIN/THIAMIN [Concomitant]
     Active Substance: VITAMINS
  10. ESOMEPRAZOLE MAGNESIUM TRIHYDRATE [Concomitant]
     Active Substance: ESOMEPRAZOLE MAGNESIUM
  11. EZETROL [Concomitant]
     Active Substance: EZETIMIBE
  12. TYLENOL [Concomitant]
     Active Substance: ACETAMINOPHEN
  13. CITALOPRAM HYDROBROMIDE. [Concomitant]
     Active Substance: CITALOPRAM HYDROBROMIDE
  14. TAMSULOSIN [Concomitant]
     Active Substance: TAMSULOSIN
  15. LIPITOR [Concomitant]
     Active Substance: ATORVASTATIN CALCIUM

REACTIONS (1)
  - Haemophagocytic lymphohistiocytosis [Fatal]
